FAERS Safety Report 17875643 (Version 3)
Quarter: 2020Q2

REPORT INFORMATION
  Report Type: Spontaneous
  Country: CA (occurrence: CA)
  Receive Date: 20200609
  Receipt Date: 20200624
  Transmission Date: 20200714
  Serious: Yes (Life-Threatening, Hospitalization, Other)
  Sender: FDA-Public Use
  Company Number: CA-BEH-2020118318

PATIENT
  Age: 41 Year
  Sex: Female
  Weight: 80.3 kg

DRUGS (4)
  1. PRIVIGEN [Suspect]
     Active Substance: HUMAN IMMUNOGLOBULIN G
     Dosage: 45 GRAM PER  KILOGRAM PER 8 HOUR, TOT
     Route: 042
     Dates: start: 20200530, end: 20200530
  2. VALACICLOVIR [Concomitant]
     Active Substance: VALACYCLOVIR HYDROCHLORIDE
  3. PRIVIGEN [Suspect]
     Active Substance: HUMAN IMMUNOGLOBULIN G
     Dosage: 65 GRAM, QD
     Route: 042
     Dates: start: 20200530, end: 20200530
  4. PRIVIGEN [Suspect]
     Active Substance: HUMAN IMMUNOGLOBULIN G
     Indication: HAEMOPHAGOCYTIC LYMPHOHISTIOCYTOSIS
     Dosage: 65 GRAM, QD
     Route: 042
     Dates: start: 20200530, end: 20200530

REACTIONS (12)
  - Wheezing [Recovering/Resolving]
  - Oxygen saturation decreased [Recovering/Resolving]
  - Arterial injury [Recovered/Resolved with Sequelae]
  - Dyspnoea [Recovering/Resolving]
  - Product use in unapproved indication [Unknown]
  - Retroperitoneal haematoma [Recovered/Resolved]
  - Anaphylactic shock [Recovering/Resolving]
  - Urticaria [Recovering/Resolving]
  - No adverse event [Unknown]
  - Hypotension [Recovering/Resolving]
  - Iatrogenic injury [Recovered/Resolved with Sequelae]
  - Pyrexia [Recovering/Resolving]

NARRATIVE: CASE EVENT DATE: 20200530
